FAERS Safety Report 6588245-6 (Version None)
Quarter: 2010Q1

REPORT INFORMATION
  Report Type: 
  Country: None (occurrence: None)
  Receive Date: 20100218
  Receipt Date: 20100210
  Transmission Date: 20100710
  Serious: Yes (Other)
  Sender: FDA-Public Use
  Company Number: US-BAYER-201013691NA

PATIENT
  Age: 21 Year
  Sex: Female
  Weight: 68 kg

DRUGS (4)
  1. MIRENA [Suspect]
     Indication: CONTRACEPTION
     Route: 015
     Dates: start: 20091201
  2. EFFEXOR [Concomitant]
  3. TRAMADOL [Concomitant]
  4. ADVAIR DISKUS 100/50 [Concomitant]

REACTIONS (8)
  - BACK PAIN [None]
  - DEVICE DISLOCATION [None]
  - DYSMENORRHOEA [None]
  - LEUKOCYTOSIS [None]
  - POST PROCEDURAL HAEMORRHAGE [None]
  - PROCEDURAL PAIN [None]
  - SEXUALLY TRANSMITTED DISEASE [None]
  - VAGINAL HAEMORRHAGE [None]
